FAERS Safety Report 7405065-0 (Version None)
Quarter: 2011Q2

REPORT INFORMATION
  Report Type: 
  Country: None (occurrence: None)
  Receive Date: 20110404
  Receipt Date: 20110324
  Transmission Date: 20111010
  Serious: Yes (Life-Threatening)
  Sender: FDA-Public Use
  Company Number: 873786

PATIENT
  Age: 80 Year
  Sex: Male

DRUGS (9)
  1. (CEFTRIAZONE) [Concomitant]
  2. DOBUTAMINE HYDROCHLORIDE [Suspect]
     Indication: ACUTE PULMONARY OEDEMA
     Dosage: 5 MCG/KG/MIN
  3. ASPIRIN [Concomitant]
  4. LEVOFLOXACIN [Suspect]
     Indication: SEPTIC SHOCK
     Dosage: 500 MG DAILY, INTRAVENOUS (NOT OTHERWISE SPECIFIED)
     Route: 042
  5. DOPAMINE HYDROCHLORIDE [Suspect]
     Indication: ACUTE PULMONARY OEDEMA
     Dosage: 5 MCG/KG/MIN
  6. (PIPERACILLIN AND TAZPBACTAM) [Concomitant]
  7. CLOPIDOGREL [Concomitant]
  8. FUROSEMIDE [Concomitant]
  9. (HEPARIN SODIUM) [Concomitant]

REACTIONS (3)
  - TORSADE DE POINTES [None]
  - LOSS OF CONSCIOUSNESS [None]
  - PULSE ABSENT [None]
